FAERS Safety Report 6601880-1 (Version None)
Quarter: 2010Q1

REPORT INFORMATION
  Report Type: 
  Country: None (occurrence: None)
  Receive Date: 20100225
  Receipt Date: 20100216
  Transmission Date: 20100710
  Serious: Yes (Hospitalization)
  Sender: FDA-Public Use
  Company Number: JP-ASTRAZENECA-2010SE04824

PATIENT
  Age: 60 Year
  Sex: Male

DRUGS (3)
  1. MEROPENEM [Suspect]
     Indication: PANCREATITIS ACUTE
     Route: 042
     Dates: end: 20100125
  2. TANNALBIN [Concomitant]
     Route: 048
  3. COLIOPAN [Concomitant]
     Route: 048

REACTIONS (1)
  - HEPATIC FUNCTION ABNORMAL [None]
